FAERS Safety Report 7698965-8 (Version None)
Quarter: 2011Q3

REPORT INFORMATION
  Report Type: 
  Country: None (occurrence: None)
  Receive Date: 20110819
  Receipt Date: 20110815
  Transmission Date: 20111222
  Serious: Yes (Life-Threatening, Hospitalization, Disabling, Other)
  Sender: FDA-Public Use
  Company Number: US-CEPHALON-2011003230

PATIENT
  Sex: Female
  Weight: 77 kg

DRUGS (2)
  1. TREANDA [Suspect]
     Indication: NON-HODGKIN'S LYMPHOMA
     Route: 042
     Dates: start: 20110215, end: 20110510
  2. RITUXAN [Concomitant]
     Indication: NON-HODGKIN'S LYMPHOMA

REACTIONS (5)
  - ACUTE MYELOID LEUKAEMIA [None]
  - PAIN IN EXTREMITY [None]
  - OEDEMA [None]
  - ERYTHEMA [None]
  - PYREXIA [None]
